FAERS Safety Report 5938355-9 (Version None)
Quarter: 2008Q4

REPORT INFORMATION
  Report Type: 
  Country: None (occurrence: None)
  Receive Date: 20081103
  Receipt Date: 20081028
  Transmission Date: 20090506
  Serious: Yes (Hospitalization)
  Sender: FDA-Public Use
  Company Number: HU-WYE-H06377208

PATIENT
  Sex: Female
  Weight: 94 kg

DRUGS (11)
  1. TEMSIROLIMUS [Suspect]
     Indication: RENAL CELL CARCINOMA
     Route: 042
     Dates: start: 20080805, end: 20081009
  2. TEMSIROLIMUS [Suspect]
     Route: 042
     Dates: start: 20081015
  3. RAMACE [Concomitant]
     Indication: HYPERTENSION
     Route: 065
  4. BETALOC [Concomitant]
     Indication: HYPERTENSION
     Route: 065
  5. CEFUROXIME AXETIL [Concomitant]
  6. XANAX [Concomitant]
     Indication: ANXIETY
     Route: 065
  7. AMILORIDE HYDROCHLORIDE [Concomitant]
     Indication: HYPERTENSION
     Dosage: UNKNOWN
     Route: 065
  8. TRAMADOL HCL [Concomitant]
     Indication: PAIN
     Route: 065
     Dates: start: 20080801
  9. ZOFRAN [Concomitant]
  10. BEVACIZUMAB [Suspect]
     Indication: RENAL CELL CARCINOMA
     Route: 042
     Dates: start: 20080805
  11. OLICARD [Concomitant]
     Indication: ANGINA PECTORIS
     Route: 065

REACTIONS (2)
  - GASTROOESOPHAGEAL REFLUX DISEASE [None]
  - VIRAL PHARYNGITIS [None]
